FAERS Safety Report 17265307 (Version 1)
Quarter: 2020Q1

REPORT INFORMATION
  Report Type: Spontaneous
  Country: US (occurrence: US)
  Receive Date: 20200114
  Receipt Date: 20200114
  Transmission Date: 20200409
  Serious: No
  Sender: FDA-Public Use
  Company Number: US-CELGENEUS-USA-20200103226

PATIENT
  Sex: Female

DRUGS (2)
  1. OTEZLA [Suspect]
     Active Substance: APREMILAST
     Indication: PRODUCT USED FOR UNKNOWN INDICATION
     Dosage: 10/20/30 MILLIGRAM TABLETS
     Route: 048
  2. OTEZLA [Suspect]
     Active Substance: APREMILAST
     Route: 048
     Dates: start: 20200108

REACTIONS (5)
  - Headache [Unknown]
  - Nausea [Unknown]
  - Micturition disorder [Unknown]
  - Renal pain [Unknown]
  - Diarrhoea [Unknown]
